FAERS Safety Report 20958467 (Version 4)
Quarter: 2022Q4

REPORT INFORMATION
  Report Type: Spontaneous
  Country: US (occurrence: US)
  Receive Date: 20220614
  Receipt Date: 20221102
  Transmission Date: 20230113
  Serious: Yes (Hospitalization, Disabling)
  Sender: FDA-Public Use
  Company Number: US-PFIZER INC-202200829931

PATIENT
  Age: 81 Year
  Sex: Female
  Weight: 64.86 kg

DRUGS (2)
  1. XELJANZ [Suspect]
     Active Substance: TOFACITINIB CITRATE
     Indication: Colitis ulcerative
     Dosage: 10 MG, 2X/DAY, (TWICE PER DAY BY MOUTH)
     Route: 048
     Dates: start: 20220603
  2. AMLODIPINE [Concomitant]
     Active Substance: AMLODIPINE BESYLATE
     Indication: Hypertension
     Dosage: UNK, (TAKE AMLODIPINE TABLETS WITHIN THE LAST TWO WEEK )

REACTIONS (1)
  - Spinal osteoarthritis [Unknown]
